FAERS Safety Report 9349711 (Version 1)
Quarter: 2013Q2

REPORT INFORMATION
  Report Type: Report from Study
  Country: US (occurrence: US)
  Receive Date: 20130614
  Receipt Date: 20130614
  Transmission Date: 20140414
  Serious: Yes (Hospitalization)
  Sender: FDA-Public Use
  Company Number: US-ABBOTT-13P-163-1101267-00

PATIENT
  Age: 46 Year
  Sex: Female

DRUGS (4)
  1. LUPRON DEPOT [Suspect]
     Indication: ENDOMETRIOSIS
     Dates: start: 200101, end: 201209
  2. DEPO PROVERA [Concomitant]
     Indication: CONTRACEPTION
  3. MS CONTIN [Concomitant]
     Indication: BACK PAIN
  4. UNKNOWN INJECTIONS INTO SPINAL COLUMN [Concomitant]
     Indication: BACK PAIN
     Route: 050

REACTIONS (6)
  - Heart rate irregular [Recovered/Resolved]
  - Chest pain [Recovered/Resolved]
  - Back pain [Not Recovered/Not Resolved]
  - Pelvic pain [Not Recovered/Not Resolved]
  - Migraine [Unknown]
  - Infection [Unknown]
